FAERS Safety Report 6765079-0 (Version None)
Quarter: 2010Q2

REPORT INFORMATION
  Report Type: 
  Country: None (occurrence: None)
  Receive Date: 20100609
  Receipt Date: 20100609
  Transmission Date: 20101027
  Serious: No
  Sender: FDA-Public Use
  Company Number: None

PATIENT
  Age: 68 Year
  Sex: Male
  Weight: 86.1834 kg

DRUGS (1)
  1. SKELAXIN 800MG KING/MEDCO HEALTH  KING/MEDCO HEALTH [Suspect]
     Indication: OSTEOARTHRITIS
     Dosage: 800 MG 2-3X/DAY PO
     Route: 048
     Dates: start: 20060213, end: 20100530

REACTIONS (6)
  - ARTHRALGIA [None]
  - DYSPNOEA [None]
  - FATIGUE [None]
  - HAEMOLYTIC ANAEMIA [None]
  - MELAENA [None]
  - MYALGIA [None]
